FAERS Safety Report 8262197-5 (Version None)
Quarter: 2012Q2

REPORT INFORMATION
  Report Type: 
  Country: None (occurrence: None)
  Receive Date: 20120402
  Receipt Date: 20120308
  Transmission Date: 20120825
  Serious: Yes (Hospitalization)
  Sender: FDA-Public Use
  Company Number: JP-2012-13862

PATIENT
  Age: 90 Year
  Sex: Male
  Weight: 54 kg

DRUGS (9)
  1. LASIX [Concomitant]
  2. TSURUDOPAMI (DOPAMINE HYDROCHLORIDE) [Concomitant]
  3. SUBPACK-B (ARTIFICIAL DIALYSATE) [Concomitant]
  4. SAMSCA [Suspect]
     Indication: FLUID RETENTION
     Dosage: 7.5 MG MILLIGRAM(S), QAM, ORAL
     Route: 048
     Dates: start: 20120214, end: 20120222
  5. DOBUPUM (DOBUTAMINE HYDROCHLORIDE) [Concomitant]
  6. HANP (CARPERITIDE) [Concomitant]
  7. ATARAX [Concomitant]
  8. HEPARIN AND PREPARATIONS (HEPARIN AND PREPARATIONS) [Concomitant]
  9. PENTAZOCINE LACTATE [Concomitant]

REACTIONS (7)
  - CONDITION AGGRAVATED [None]
  - OLIGURIA [None]
  - BLOOD PRESSURE DECREASED [None]
  - RESTLESSNESS [None]
  - RENAL FAILURE [None]
  - VOLUME BLOOD DECREASED [None]
  - ANAEMIA [None]
